FAERS Safety Report 5804874-9 (Version None)
Quarter: 2008Q3

REPORT INFORMATION
  Report Type: 
  Country: None (occurrence: None)
  Receive Date: 20080709
  Receipt Date: 20080627
  Transmission Date: 20090109
  Serious: No
  Sender: FDA-Public Use
  Company Number: US-PFIZER INC-2007085299

PATIENT
  Sex: Male
  Weight: 97 kg

DRUGS (4)
  1. CHANTIX [Suspect]
     Indication: SMOKING CESSATION THERAPY
  2. NEXIUM [Concomitant]
  3. LIPITOR [Concomitant]
     Indication: BLOOD CHOLESTEROL INCREASED
  4. AMITIZA [Concomitant]
     Indication: IRRITABLE BOWEL SYNDROME

REACTIONS (1)
  - DENTAL CARIES [None]
